FAERS Safety Report 7084380-7 (Version None)
Quarter: 2010Q4

REPORT INFORMATION
  Report Type: 
  Country: None (occurrence: None)
  Receive Date: 20101104
  Receipt Date: 20101020
  Transmission Date: 20110411
  Serious: Yes (Other)
  Sender: FDA-Public Use
  Company Number: US-AMGEN-KDL260372

PATIENT

DRUGS (4)
  1. ENBREL [Suspect]
     Indication: RHEUMATOID ARTHRITIS
     Dosage: 50 MG, QWK
     Route: 058
     Dates: start: 20071214
  2. METHOTREXATE [Concomitant]
     Dosage: 20 MG, QWK
     Route: 048
     Dates: start: 20060101
  3. SULFASALAZINE [Concomitant]
     Dosage: 500 MG, BID
     Route: 048
     Dates: start: 20060101
  4. HYDROXYCHLOROQUINE [Concomitant]
     Dosage: 200 MG, BID
     Route: 048
     Dates: start: 20060101

REACTIONS (5)
  - CHRONIC OBSTRUCTIVE PULMONARY DISEASE [None]
  - DYSPEPSIA [None]
  - FEELING ABNORMAL [None]
  - RHEUMATOID ARTHRITIS [None]
  - SINUS DISORDER [None]
